FAERS Safety Report 9759589 (Version 4)
Quarter: 2015Q3

REPORT INFORMATION
  Report Type: Spontaneous
  Country: US (occurrence: US)
  Receive Date: 20131212
  Receipt Date: 20150828
  Transmission Date: 20151125
  Serious: Yes (Hospitalization, Other)
  Sender: FDA-Public Use
  Company Number: 2033605

PATIENT
  Age: 53 Year
  Sex: Male

DRUGS (8)
  1. LIDOCAINE HYDROCHLORIDE. [Suspect]
     Active Substance: LIDOCAINE HYDROCHLORIDE
     Indication: INTERVERTEBRAL DISC DEGENERATION
     Dosage: UNKNOWN, ONCE, NECK
     Route: 050
     Dates: start: 20130617, end: 20130617
  2. CORTICOSTEROIDS [Suspect]
     Active Substance: CORTICOSTEROID NOS
     Indication: INTERVERTEBRAL DISC DEGENERATION
     Dosage: UNKNOWN, ONCE, NECK
     Route: 050
     Dates: start: 20130617, end: 20130617
  3. LIDOCAINE HYDROCHLORIDE. [Suspect]
     Active Substance: LIDOCAINE HYDROCHLORIDE
     Indication: INTERVERTEBRAL DISC DEGENERATION
     Dosage: UNKNOWN, ONCE, LUMBAR
     Route: 050
     Dates: start: 20130805, end: 20130805
  4. LIDOCAINE HYDROCHLORIDE. [Suspect]
     Active Substance: LIDOCAINE HYDROCHLORIDE
     Indication: SPINAL OSTEOARTHRITIS
     Dosage: UNKNOWN, ONCE, NECK
     Route: 050
     Dates: start: 20130617, end: 20130617
  5. CORTICOSTEROIDS [Suspect]
     Active Substance: CORTICOSTEROID NOS
     Indication: SPINAL OSTEOARTHRITIS
     Dosage: UNKNOWN, ONCE, LUMBAR
     Route: 050
     Dates: start: 20130805, end: 20130805
  6. CORTICOSTEROIDS [Suspect]
     Active Substance: CORTICOSTEROID NOS
     Indication: INTERVERTEBRAL DISC DEGENERATION
     Dosage: UNKNOWN, ONCE, LUMBAR
     Route: 050
     Dates: start: 20130805, end: 20130805
  7. LIDOCAINE HYDROCHLORIDE. [Suspect]
     Active Substance: LIDOCAINE HYDROCHLORIDE
     Indication: SPINAL OSTEOARTHRITIS
     Dosage: UNKNOWN, ONCE, LUMBAR
     Route: 050
     Dates: start: 20130805, end: 20130805
  8. CORTICOSTEROIDS [Suspect]
     Active Substance: CORTICOSTEROID NOS
     Indication: SPINAL OSTEOARTHRITIS
     Dosage: UNKNOWN, ONCE, NECK
     Route: 050
     Dates: start: 20130617, end: 20130617

REACTIONS (16)
  - Renal failure [Recovered/Resolved]
  - Altered state of consciousness [Recovering/Resolving]
  - Acute respiratory distress syndrome [Recovering/Resolving]
  - Vomiting [Recovering/Resolving]
  - Anaemia [Recovering/Resolving]
  - Haemorrhagic stroke [Recovering/Resolving]
  - Product contamination physical [Unknown]
  - Meningitis bacterial [Recovered/Resolved]
  - Mitral valve disease [Recovering/Resolving]
  - Deep vein thrombosis [Recovering/Resolving]
  - Endocarditis [Recovered/Resolved]
  - Peripheral embolism [Not Recovered/Not Resolved]
  - Poor quality drug administered [Unknown]
  - Endocarditis [Recovering/Resolving]
  - Embolic stroke [Not Recovered/Not Resolved]
  - Disseminated intravascular coagulation [Recovering/Resolving]

NARRATIVE: CASE EVENT DATE: 20130617
